FAERS Safety Report 4915881-2 (Version None)
Quarter: 2006Q1

REPORT INFORMATION
  Report Type: 
  Country: None (occurrence: None)
  Receive Date: 20060214
  Receipt Date: 20060207
  Transmission Date: 20060701
  Serious: Yes (Disabling, Other)
  Sender: FDA-Public Use
  Company Number: 2006019366

PATIENT
  Age: 58 Year
  Sex: Male
  Weight: 69.8539 kg

DRUGS (4)
  1. LIPITOR [Suspect]
     Indication: DIABETES MELLITUS
     Dosage: 20 MG (20 MG, 1 IN 1 D)
  2. GLYBURIDE [Concomitant]
  3. ACTOS [Concomitant]
  4. TAMSULOSIN HCL [Concomitant]

REACTIONS (2)
  - ROAD TRAFFIC ACCIDENT [None]
  - VISUAL DISTURBANCE [None]
